FAERS Safety Report 7043552-8 (Version None)
Quarter: 2010Q4

REPORT INFORMATION
  Report Type: 
  Country: None (occurrence: None)
  Receive Date: 20101013
  Receipt Date: 20101006
  Transmission Date: 20110411
  Serious: Yes (Hospitalization)
  Sender: FDA-Public Use
  Company Number: A0804411A

PATIENT
  Age: 71 Year
  Sex: Female

DRUGS (1)
  1. AVANDARYL [Suspect]
     Indication: DIABETES MELLITUS
     Route: 048
     Dates: start: 20070219, end: 20070322

REACTIONS (2)
  - CAROTID ARTERY DISEASE [None]
  - THROMBOSIS [None]
